FAERS Safety Report 8637120 (Version 3)
Quarter: 2013Q4

REPORT INFORMATION
  Report Type: Spontaneous
  Country: US (occurrence: US)
  Receive Date: 20120627
  Receipt Date: 20131127
  Transmission Date: 20140711
  Serious: Yes (Other)
  Sender: FDA-Public Use
  Company Number: US-ASTRAZENECA-2012SE35626

PATIENT
  Age: 54 Year
  Sex: Male
  Weight: 63.5 kg

DRUGS (19)
  1. NEXIUM [Suspect]
     Indication: GASTROOESOPHAGEAL REFLUX DISEASE
     Route: 048
     Dates: start: 200802, end: 201110
  2. NEXIUM [Suspect]
     Indication: GASTROOESOPHAGEAL REFLUX DISEASE
     Route: 048
     Dates: start: 20080327
  3. NEXIUM [Suspect]
     Indication: GASTROOESOPHAGEAL REFLUX DISEASE
     Route: 048
     Dates: start: 20100707
  4. PRILOSEC [Suspect]
     Route: 048
     Dates: start: 20050330
  5. PRILOSEC [Suspect]
     Dosage: OVER THE COUNTER
     Route: 048
     Dates: start: 20050727
  6. CRESTOR [Concomitant]
  7. PREDIZONE [Concomitant]
  8. PREDIZONE [Concomitant]
     Route: 048
     Dates: start: 20051006
  9. HYDROCODONE [Concomitant]
  10. LORATADINE [Concomitant]
     Dates: start: 20050330
  11. ALPRAZOLAM [Concomitant]
  12. AMITRIPTYLINE HCL [Concomitant]
  13. NABUMETONE [Concomitant]
  14. CYCLOBENZAPRINE [Concomitant]
  15. ASPIRIN [Concomitant]
     Route: 048
     Dates: start: 20130403
  16. NAPROXEN [Concomitant]
     Route: 048
     Dates: start: 20130403
  17. OMEGA 3 [Concomitant]
     Route: 048
     Dates: start: 20130403
  18. BIAXIN [Concomitant]
     Dates: start: 20050714
  19. CEPHALEXIN [Concomitant]
     Dates: start: 20060211

REACTIONS (18)
  - Cerebrovascular accident [Unknown]
  - Osteoporosis [Unknown]
  - Multiple fractures [Unknown]
  - Spinal osteoarthritis [Unknown]
  - Intervertebral disc degeneration [Unknown]
  - Bone pain [Unknown]
  - Back pain [Unknown]
  - Pain in extremity [Unknown]
  - Calcium deficiency [Unknown]
  - Vitamin D deficiency [Unknown]
  - Intervertebral disc disorder [Unknown]
  - Tobacco abuse [Unknown]
  - Hyperlipidaemia [Unknown]
  - Arthropathy [Unknown]
  - Neck pain [Unknown]
  - Hypertension [Unknown]
  - Cervical radiculopathy [Unknown]
  - Osteopenia [Unknown]
